FAERS Safety Report 11710171 (Version 1)
Quarter: 2015Q4

REPORT INFORMATION
  Report Type: Spontaneous
  Country: US (occurrence: US)
  Receive Date: 20151104
  Receipt Date: 20151104
  Transmission Date: 20160304
  Serious: No
  Sender: FDA-Public Use
  Company Number: US-ELI_LILLY_AND_COMPANY-US201104002689

PATIENT
  Age: 77 Year
  Sex: Female

DRUGS (2)
  1. FORTEO [Suspect]
     Active Substance: TERIPARATIDE
     Dosage: UNK
     Dates: start: 201103
  2. FORTEO [Suspect]
     Active Substance: TERIPARATIDE
     Dosage: UNK
     Dates: start: 2005

REACTIONS (5)
  - Dental alveolar anomaly [Unknown]
  - Tooth infection [Unknown]
  - Incorrect drug administration duration [Unknown]
  - Osteoporosis [Not Recovered/Not Resolved]
  - Tooth abscess [Unknown]
